FAERS Safety Report 20226222 (Version 1)
Quarter: 2021Q4

REPORT INFORMATION
  Report Type: Spontaneous
  Country: NL (occurrence: NL)
  Receive Date: 20211224
  Receipt Date: 20211224
  Transmission Date: 20220303
  Serious: No
  Sender: FDA-Public Use
  Company Number: None

PATIENT
  Sex: Female

DRUGS (30)
  1. MYCOPHENOLATE MOFETIL [Suspect]
     Active Substance: MYCOPHENOLATE MOFETIL
     Indication: Systemic lupus erythematosus
     Dosage: UNK
     Route: 065
  2. MYCOPHENOLATE MOFETIL [Suspect]
     Active Substance: MYCOPHENOLATE MOFETIL
     Indication: Meningitis
  3. MYCOPHENOLATE MOFETIL [Suspect]
     Active Substance: MYCOPHENOLATE MOFETIL
     Indication: Pericarditis
  4. MYCOPHENOLATE MOFETIL [Suspect]
     Active Substance: MYCOPHENOLATE MOFETIL
     Indication: Pleurisy
  5. MYCOPHENOLATE MOFETIL [Suspect]
     Active Substance: MYCOPHENOLATE MOFETIL
     Indication: Polymyositis
  6. MYCOPHENOLATE MOFETIL [Suspect]
     Active Substance: MYCOPHENOLATE MOFETIL
     Indication: Mastitis
  7. AZATHIOPRINE [Suspect]
     Active Substance: AZATHIOPRINE
     Indication: Pleurisy
     Dosage: UNK
     Route: 065
  8. AZATHIOPRINE [Suspect]
     Active Substance: AZATHIOPRINE
     Indication: Pericarditis
  9. AZATHIOPRINE [Suspect]
     Active Substance: AZATHIOPRINE
     Indication: Polymyositis
  10. AZATHIOPRINE [Suspect]
     Active Substance: AZATHIOPRINE
     Indication: Systemic lupus erythematosus
  11. AZATHIOPRINE [Suspect]
     Active Substance: AZATHIOPRINE
     Indication: Mastitis
  12. AZATHIOPRINE [Suspect]
     Active Substance: AZATHIOPRINE
     Indication: Meningitis
  13. IBUPROFEN [Suspect]
     Active Substance: IBUPROFEN
     Indication: Systemic lupus erythematosus
     Dosage: UNK
     Route: 065
  14. IBUPROFEN [Suspect]
     Active Substance: IBUPROFEN
     Indication: Pleurisy
  15. IBUPROFEN [Suspect]
     Active Substance: IBUPROFEN
     Indication: Polymyositis
  16. IBUPROFEN [Suspect]
     Active Substance: IBUPROFEN
     Indication: Pericarditis
  17. IBUPROFEN [Suspect]
     Active Substance: IBUPROFEN
     Indication: Mastitis
  18. IBUPROFEN [Suspect]
     Active Substance: IBUPROFEN
     Indication: Meningitis
  19. HYDROXYCHLOROQUINE [Suspect]
     Active Substance: HYDROXYCHLOROQUINE
     Indication: Polymyositis
     Dosage: UNK
     Route: 065
  20. HYDROXYCHLOROQUINE [Suspect]
     Active Substance: HYDROXYCHLOROQUINE
     Indication: Meningitis
  21. HYDROXYCHLOROQUINE [Suspect]
     Active Substance: HYDROXYCHLOROQUINE
     Indication: Systemic lupus erythematosus
  22. HYDROXYCHLOROQUINE [Suspect]
     Active Substance: HYDROXYCHLOROQUINE
     Indication: Pericarditis
  23. HYDROXYCHLOROQUINE [Suspect]
     Active Substance: HYDROXYCHLOROQUINE
     Indication: Mastitis
  24. HYDROXYCHLOROQUINE [Suspect]
     Active Substance: HYDROXYCHLOROQUINE
     Indication: Pleurisy
  25. PREDNISOLONE [Concomitant]
     Active Substance: PREDNISOLONE
     Indication: Mastitis
     Dosage: UNK
     Route: 065
  26. PREDNISOLONE [Concomitant]
     Active Substance: PREDNISOLONE
     Indication: Pleurisy
  27. PREDNISOLONE [Concomitant]
     Active Substance: PREDNISOLONE
     Indication: Meningitis
  28. PREDNISOLONE [Concomitant]
     Active Substance: PREDNISOLONE
     Indication: Pericarditis
  29. PREDNISOLONE [Concomitant]
     Active Substance: PREDNISOLONE
     Indication: Polymyositis
  30. PREDNISOLONE [Concomitant]
     Active Substance: PREDNISOLONE
     Indication: Systemic lupus erythematosus

REACTIONS (1)
  - Gastrointestinal disorder [Unknown]
